FAERS Safety Report 13156547 (Version 5)
Quarter: 2017Q2

REPORT INFORMATION
  Report Type: Spontaneous
  Country: US (occurrence: US)
  Receive Date: 20170126
  Receipt Date: 20170518
  Transmission Date: 20170830
  Serious: Yes (Hospitalization)
  Sender: FDA-Public Use
  Company Number: US-ACTELION-A-NJ2017-148116

PATIENT
  Age: 51 Year
  Sex: Female
  Weight: 108.84 kg

DRUGS (3)
  1. SILDENAFIL. [Concomitant]
     Active Substance: SILDENAFIL
  2. OPSUMIT [Suspect]
     Active Substance: MACITENTAN
     Indication: PULMONARY ARTERIAL HYPERTENSION
     Dosage: 10 MG, QD
     Route: 048
     Dates: start: 20160929
  3. UPTRAVI [Suspect]
     Active Substance: SELEXIPAG
     Indication: PULMONARY ARTERIAL HYPERTENSION
     Dosage: 200 MCG, BID
     Route: 048

REACTIONS (10)
  - Pulmonary arterial pressure increased [Unknown]
  - Cardiac failure congestive [Unknown]
  - Fluid retention [Unknown]
  - Rhinorrhoea [Unknown]
  - Disease complication [Unknown]
  - Dyspnoea [Unknown]
  - Unevaluable event [Unknown]
  - Lung disorder [Unknown]
  - Nasal congestion [Unknown]
  - Dizziness [Unknown]
